FAERS Safety Report 5201610-4 (Version None)
Quarter: 2006Q4

REPORT INFORMATION
  Report Type: 
  Country: None (occurrence: None)
  Receive Date: 20061006
  Receipt Date: 20060321
  Transmission Date: 20070319
  Serious: Yes (Hospitalization)
  Sender: FDA-Public Use
  Company Number: 200610308BWH

PATIENT
  Sex: Female

DRUGS (1)
  1. CIPRO [Suspect]

REACTIONS (1)
  - PANCYTOPENIA [None]
